FAERS Safety Report 13699991 (Version 1)
Quarter: 2017Q2

REPORT INFORMATION
  Report Type: Report from Study
  Country: JP (occurrence: JP)
  Receive Date: 20170629
  Receipt Date: 20170629
  Transmission Date: 20170830
  Serious: Yes (Death, Hospitalization)
  Sender: FDA-Public Use
  Company Number: JP-BAUSCH-BL-2017-019966

PATIENT
  Age: 62 Year
  Sex: Female

DRUGS (6)
  1. FUROSEMIDE. [Concomitant]
     Active Substance: FUROSEMIDE
     Indication: ASCITES
     Route: 048
     Dates: start: 20170314, end: 20170601
  2. URSODEOXYCHOLIC ACID [Concomitant]
     Active Substance: URSODIOL
     Indication: LIVER DISORDER
     Route: 048
     Dates: start: 20170308, end: 20170411
  3. RIFXIMA TABLETS 200 MG [Suspect]
     Active Substance: RIFAXIMIN
     Indication: HYPERAMMONAEMIA
     Route: 048
     Dates: start: 20170305, end: 20170601
  4. MONILAC [Concomitant]
     Active Substance: LACTULOSE
     Indication: HYPERAMMONAEMIA
     Route: 048
     Dates: start: 20170329, end: 20170330
  5. MORIHEPAMIN [Concomitant]
     Indication: HYPERAMMONAEMIA
     Route: 042
     Dates: start: 20170326, end: 20170605
  6. LIVACT [Concomitant]
     Active Substance: AMINO ACIDS
     Indication: HYPOALBUMINAEMIA
     Route: 048
     Dates: start: 20170317, end: 20170601

REACTIONS (2)
  - Hepatic encephalopathy [Fatal]
  - Hyperkalaemia [Recovered/Resolved]

NARRATIVE: CASE EVENT DATE: 2017
